FAERS Safety Report 14777113 (Version 1)
Quarter: 2018Q2

REPORT INFORMATION
  Report Type: Spontaneous
  Country: US (occurrence: US)
  Receive Date: 20180419
  Receipt Date: 20180419
  Transmission Date: 20180711
  Serious: Yes (Other)
  Sender: FDA-Public Use
  Company Number: US-TEVA-764415USA

PATIENT
  Sex: Female

DRUGS (3)
  1. ESTROGEN NOS [Concomitant]
     Active Substance: ESTROGENS
  2. OXYCODONE HYDROCHLORIDE. [Suspect]
     Active Substance: OXYCODONE HYDROCHLORIDE
     Route: 065
  3. REMERON [Concomitant]
     Active Substance: MIRTAZAPINE

REACTIONS (3)
  - Chest discomfort [Unknown]
  - Chest pain [Recovering/Resolving]
  - Stress [Recovering/Resolving]
